FAERS Safety Report 6054363-4 (Version None)
Quarter: 2009Q1

REPORT INFORMATION
  Report Type: 
  Country: None (occurrence: None)
  Receive Date: 20090127
  Receipt Date: 20090120
  Transmission Date: 20090719
  Serious: Yes (Other)
  Sender: FDA-Public Use
  Company Number: US-GENENTECH-275846

PATIENT
  Sex: Male
  Weight: 69.252 kg

DRUGS (2)
  1. RANIBIZUMAB [Suspect]
     Indication: CHOROIDAL NEOVASCULARISATION
     Dosage: 0.5 MG, PRN
     Route: 031
     Dates: start: 20090115
  2. RANIBIZUMAB [Suspect]
     Indication: MACULAR DEGENERATION

REACTIONS (1)
  - ISCHAEMIA [None]
